FAERS Safety Report 17597669 (Version 1)
Quarter: 2020Q1

REPORT INFORMATION
  Report Type: Spontaneous
  Country: RU (occurrence: RU)
  Receive Date: 20200330
  Receipt Date: 20200330
  Transmission Date: 20200409
  Serious: Yes (Life-Threatening, Other)
  Sender: FDA-Public Use
  Company Number: NVSC2020RU085533

PATIENT
  Age: 66 Year
  Sex: Female
  Weight: 150 kg

DRUGS (2)
  1. AMOKSIKLAV [Suspect]
     Active Substance: AMOXICILLIN\CLAVULANATE POTASSIUM
     Indication: INFECTION PROPHYLAXIS
     Dosage: 1.2G IN 100ML 0.9% NACL SOLUTION
     Route: 041
     Dates: start: 20200315, end: 20200315
  2. VANCOMYCIN [Concomitant]
     Active Substance: VANCOMYCIN
     Indication: INFECTION PROPHYLAXIS
     Dosage: 1 G, BID
     Route: 041
     Dates: start: 20200312, end: 20200315

REACTIONS (6)
  - Urticaria [Recovered/Resolved]
  - Acute kidney injury [Recovered/Resolved]
  - Deafness [Recovering/Resolving]
  - Blood creatinine increased [Recovering/Resolving]
  - Blood urea increased [Recovering/Resolving]
  - Oliguria [Recovering/Resolving]

NARRATIVE: CASE EVENT DATE: 20200315
